FAERS Safety Report 24721932 (Version 1)
Quarter: 2024Q4

REPORT INFORMATION
  Report Type: Spontaneous
  Country: US (occurrence: None)
  Receive Date: 20241210
  Receipt Date: 20241210
  Transmission Date: 20250115
  Serious: Yes (Life-Threatening, Hospitalization, Other)
  Sender: Public
  Company Number: None

PATIENT
  Age: 57 Year
  Sex: Female
  Weight: 103.5 kg

DRUGS (7)
  1. .DELTA.9-TETRAHYDROCANNABINOLIC ACID\HERBALS [Suspect]
     Active Substance: .DELTA.9-TETRAHYDROCANNABINOLIC ACID\HERBALS
     Indication: Analgesic therapy
     Dosage: AS NEEDED RESPIRATORY (INHALATION)?
     Route: 055
     Dates: start: 20230101, end: 20241121
  2. .DELTA.9-TETRAHYDROCANNABINOLIC ACID\HERBALS [Suspect]
     Active Substance: .DELTA.9-TETRAHYDROCANNABINOLIC ACID\HERBALS
     Indication: Sleep disorder
  3. METOPROLOL [Concomitant]
     Active Substance: METOPROLOL
  4. KEPPRA [Concomitant]
     Active Substance: LEVETIRACETAM
  5. ZOLOFT [Concomitant]
     Active Substance: SERTRALINE HYDROCHLORIDE
  6. ASPIRIN [Concomitant]
     Active Substance: ASPIRIN
  7. IBUPROFEN [Concomitant]
     Active Substance: IBUPROFEN

REACTIONS (5)
  - Musculoskeletal disorder [None]
  - Euphoric mood [None]
  - Aggression [None]
  - Depression [None]
  - Product quality issue [None]
